FAERS Safety Report 9793202 (Version 1)
Quarter: 2013Q4

REPORT INFORMATION
  Report Type: Spontaneous
  Country: US (occurrence: None)
  Receive Date: 20131231
  Receipt Date: 20131231
  Transmission Date: 20140711
  Serious: Yes (Disabling)
  Sender: FDA-Public Use
  Company Number: None

PATIENT
  Age: 78 Year
  Sex: Male

DRUGS (3)
  1. ZYTIGA [Suspect]
     Indication: PROSTATE CANCER
     Route: 048
     Dates: start: 20131008, end: 20131211
  2. XTANDI [Suspect]
     Indication: PROSTATE CANCER
     Route: 048
     Dates: start: 20131121, end: 20131211
  3. EPLERENONE [Concomitant]

REACTIONS (12)
  - Prostatic specific antigen increased [None]
  - Weight decreased [None]
  - Headache [None]
  - Muscle atrophy [None]
  - Gait disturbance [None]
  - Speech disorder [None]
  - Thinking abnormal [None]
  - Incontinence [None]
  - Faecal incontinence [None]
  - Fatigue [None]
  - Abdominal pain upper [None]
  - Nausea [None]
